FAERS Safety Report 6003776-5 (Version None)
Quarter: 2008Q4

REPORT INFORMATION
  Report Type: 
  Country: None (occurrence: None)
  Receive Date: 20081216
  Receipt Date: 20081211
  Transmission Date: 20090506
  Serious: Yes (Death)
  Sender: FDA-Public Use
  Company Number: PHBS2008US06658

PATIENT

DRUGS (6)
  1. PROLEUKIN [Suspect]
     Indication: METASTATIC MALIGNANT MELANOMA
     Dosage: 9MIU/M2/DAY
  2. CISPLATIN [Suspect]
     Indication: METASTATIC MALIGNANT MELANOMA
     Dosage: 20 MG/M2, QD
     Route: 042
  3. VINBLASTINE SULFATE [Suspect]
     Indication: METASTATIC MALIGNANT MELANOMA
     Dosage: 1.2 MG/M2, QD
     Route: 042
  4. DACARBAZINE [Suspect]
     Indication: METASTATIC MALIGNANT MELANOMA
     Dosage: 800 MG/M2, ONCE/SINGLE
  5. INTERFERON ALFA-2B [Suspect]
     Dosage: 5 MU/M2
     Route: 058
  6. NEUPOGEN [Concomitant]
     Dosage: 5 G/KG, QD
     Route: 058

REACTIONS (2)
  - DRUG TOXICITY [None]
  - RENAL FAILURE [None]
